FAERS Safety Report 9928387 (Version 1)
Quarter: 2014Q1

REPORT INFORMATION
  Report Type: Report from Study
  Country: US (occurrence: US)
  Receive Date: 20140227
  Receipt Date: 20140227
  Transmission Date: 20141002
  Serious: Yes (Hospitalization)
  Sender: FDA-Public Use
  Company Number: US-ROCHE-1337668

PATIENT
  Age: 85 Year
  Sex: Male

DRUGS (19)
  1. LUCENTIS [Suspect]
     Indication: DIABETIC RETINAL OEDEMA
     Route: 050
  2. LUCENTIS [Suspect]
     Indication: DIABETIC RETINOPATHY
  3. AVASTIN [Suspect]
     Indication: PRODUCT USED FOR UNKNOWN INDICATION
     Route: 065
  4. LEVAQUIN [Concomitant]
  5. ZYMAR [Concomitant]
  6. GLIPIZIDE [Concomitant]
  7. CRESTOR [Concomitant]
  8. TYLENOL [Concomitant]
  9. COUMADIN [Concomitant]
  10. SYNTHROID [Concomitant]
  11. TIMOLOL [Concomitant]
     Dosage: EYE DROPS BOTH EYES BID
     Route: 065
  12. TRAMADOL [Concomitant]
  13. MYDRIACYL [Concomitant]
     Route: 065
  14. NEO-SYNEPHRINE [Concomitant]
     Route: 065
  15. TETRACAINE [Concomitant]
     Route: 065
  16. LIDOCAINE [Concomitant]
     Route: 065
  17. BETADINE [Concomitant]
     Route: 065
  18. COSOPT [Concomitant]
     Dosage: BOTH EYES BID
     Route: 065
  19. VIGAMOX [Concomitant]
     Dosage: QID FOR 3 DAYS
     Route: 065

REACTIONS (14)
  - Dehydration [Unknown]
  - Hyponatraemia [Unknown]
  - Visual acuity reduced [Unknown]
  - Visual field defect [Unknown]
  - Astigmatism [Unknown]
  - Metamorphopsia [Unknown]
  - Visual impairment [Unknown]
  - Cutis laxa [Unknown]
  - Vision blurred [Unknown]
  - Vitreous degeneration [Unknown]
  - Posterior capsule opacification [Unknown]
  - Vitreous detachment [Unknown]
  - Hypoacusis [Unknown]
  - Retinal depigmentation [Unknown]
